FAERS Safety Report 13655668 (Version 1)
Quarter: 2017Q2

REPORT INFORMATION
  Report Type: Spontaneous
  Country: US (occurrence: US)
  Receive Date: 20170615
  Receipt Date: 20170615
  Transmission Date: 20170830
  Serious: No
  Sender: FDA-Public Use
  Company Number: US-GLAXOSMITHKLINE-US2017091572

PATIENT
  Sex: Female

DRUGS (2)
  1. BREO ELLIPTA [Suspect]
     Active Substance: FLUTICASONE FUROATE\VILANTEROL TRIFENATATE
     Indication: BRONCHIECTASIS
     Dosage: 1 PUFF(S), QD
     Route: 055
     Dates: start: 20170404, end: 20170606
  2. CITALOPRAM [Concomitant]
     Active Substance: CITALOPRAM HYDROBROMIDE

REACTIONS (8)
  - Condition aggravated [Unknown]
  - Irritability [Recovered/Resolved]
  - Insomnia [Recovered/Resolved]
  - Gingival discomfort [Unknown]
  - Gingival erythema [Unknown]
  - Gingival pain [Unknown]
  - Gingival discolouration [Unknown]
  - Product use in unapproved indication [Unknown]
